FAERS Safety Report 9490956 (Version 2)
Quarter: 2013Q3

REPORT INFORMATION
  Report Type: Spontaneous
  Country: US (occurrence: US)
  Receive Date: 20130830
  Receipt Date: 20130925
  Transmission Date: 20140515
  Serious: Yes (Other)
  Sender: FDA-Public Use
  Company Number: US-BAYER-2013-104831

PATIENT
  Age: 27 Year
  Sex: Female
  Weight: 83.9 kg

DRUGS (2)
  1. MIRENA [Suspect]
     Indication: CONTRACEPTION
     Dosage: 20 MCG/24HR, CONT
     Route: 015
     Dates: start: 20130617, end: 20130717
  2. LAMOTRIGINE [Concomitant]
     Indication: CONVULSION
     Dosage: 150 MG, BID
     Route: 048
     Dates: start: 20130810

REACTIONS (2)
  - Menorrhagia [Recovered/Resolved]
  - Device dislocation [Recovered/Resolved]
